FAERS Safety Report 5506904-0 (Version None)
Quarter: 2007Q4

REPORT INFORMATION
  Report Type: 
  Country: None (occurrence: None)
  Receive Date: 20071105
  Receipt Date: 20071024
  Transmission Date: 20080405
  Serious: Yes (Hospitalization)
  Sender: FDA-Public Use
  Company Number: FR-PFIZER INC-2007090727

PATIENT
  Sex: Female

DRUGS (2)
  1. CHAMPIX [Suspect]
     Indication: SMOKING CESSATION THERAPY
  2. LITHIUM [Concomitant]
     Indication: BIPOLAR I DISORDER

REACTIONS (1)
  - MANIA [None]
